FAERS Safety Report 19466086 (Version 1)
Quarter: 2021Q2

REPORT INFORMATION
  Report Type: Spontaneous
  Country: CN (occurrence: CN)
  Receive Date: 20210627
  Receipt Date: 20210627
  Transmission Date: 20210717
  Serious: Yes (Life-Threatening, Hospitalization)
  Sender: FDA-Public Use
  Company Number: NVSC2021CN143994

PATIENT
  Age: 47 Year
  Sex: Male
  Weight: 51 kg

DRUGS (2)
  1. TEGRETOL [Suspect]
     Active Substance: CARBAMAZEPINE
     Indication: CHOLANGIOCARCINOMA
     Dosage: 100 MG, TID
     Route: 048
     Dates: start: 20210602, end: 20210615
  2. CRAVIT [Concomitant]
     Active Substance: LEVOFLOXACIN
     Indication: CHOLANGIOCARCINOMA
     Dosage: 0.5 G, QD
     Route: 042
     Dates: start: 20210610, end: 20210612

REACTIONS (1)
  - Drug eruption [Unknown]

NARRATIVE: CASE EVENT DATE: 20210612
